FAERS Safety Report 24963649 (Version 1)
Quarter: 2025Q1

REPORT INFORMATION
  Report Type: Spontaneous
  Country: HU (occurrence: HU)
  Receive Date: 20250213
  Receipt Date: 20250213
  Transmission Date: 20250409
  Serious: Yes (Other)
  Sender: CHEPLAPHARM
  Company Number: HU-ROCHE-10000199092

PATIENT

DRUGS (2)
  1. CAPECITABINE [Suspect]
     Active Substance: CAPECITABINE
     Indication: Product used for unknown indication
  2. CAPECITABINE [Suspect]
     Active Substance: CAPECITABINE
     Indication: Product used for unknown indication

REACTIONS (7)
  - Pain [Unknown]
  - Gastrointestinal disorder [Unknown]
  - Candida infection [Unknown]
  - Stomatitis [Unknown]
  - Skin exfoliation [Unknown]
  - Blister [Unknown]
  - Accident [Unknown]
